FAERS Safety Report 20214365 (Version 1)
Quarter: 2021Q4

REPORT INFORMATION
  Report Type: Report from Study
  Country: US (occurrence: US)
  Receive Date: 20211221
  Receipt Date: 20211221
  Transmission Date: 20220303
  Serious: Yes (Other)
  Sender: FDA-Public Use
  Company Number: US-GILEAD-2021-0561851

PATIENT
  Sex: Female

DRUGS (16)
  1. AZTREONAM LYSINE [Suspect]
     Active Substance: AZTREONAM LYSINE
     Indication: Cystic fibrosis
     Route: 065
  2. SODIUM CHLORIDE [Concomitant]
     Active Substance: SODIUM CHLORIDE
  3. ALBUTEROL SULFATE [Concomitant]
     Active Substance: ALBUTEROL SULFATE
  4. OMEPRAZOLE [Concomitant]
     Active Substance: OMEPRAZOLE
  5. FISH OIL [Concomitant]
     Active Substance: FISH OIL
  6. HERBALS\LINSEED OIL [Concomitant]
     Active Substance: HERBALS\LINSEED OIL
  7. ZENPEP [Concomitant]
     Active Substance: PANCRELIPASE AMYLASE\PANCRELIPASE LIPASE\PANCRELIPASE PROTEASE
  8. VITAMIN D NOS [Concomitant]
     Active Substance: VITAMIN D NOS
  9. SELENIUM [Concomitant]
     Active Substance: SELENIUM
  10. COLISTIN SULFATE [Concomitant]
     Active Substance: COLISTIN SULFATE
  11. COPPER [Concomitant]
     Active Substance: COPPER
  12. AZITHROMYCIN [Concomitant]
     Active Substance: AZITHROMYCIN
  13. SINGULAIR [Concomitant]
     Active Substance: MONTELUKAST SODIUM
  14. PULMOZYME [Concomitant]
     Active Substance: DORNASE ALFA
  15. IRON [Concomitant]
     Active Substance: IRON
  16. TRIKAFTA [Concomitant]
     Active Substance: ELEXACAFTOR\IVACAFTOR\TEZACAFTOR

REACTIONS (1)
  - Cystic fibrosis [Not Recovered/Not Resolved]
